FAERS Safety Report 25407324 (Version 5)
Quarter: 2025Q3

REPORT INFORMATION
  Report Type: Spontaneous
  Country: JP (occurrence: JP)
  Receive Date: 20250606
  Receipt Date: 20250909
  Transmission Date: 20251021
  Serious: Yes (Hospitalization, Other)
  Sender: PFIZER
  Company Number: JP-PFIZER INC-PV202500066694

PATIENT
  Age: 28 Year
  Sex: Female
  Weight: 57 kg

DRUGS (4)
  1. CABERGOLINE [Suspect]
     Active Substance: CABERGOLINE
     Indication: Hyperprolactinaemia
     Dosage: 1 TABLET, WEEKLY
     Route: 048
     Dates: start: 20221001, end: 20230320
  2. CABERGOLINE [Suspect]
     Active Substance: CABERGOLINE
     Indication: Pituitary tumour benign
     Dosage: 1 DF
     Route: 048
     Dates: end: 20250518
  3. CABERGOLINE [Suspect]
     Active Substance: CABERGOLINE
     Dosage: 2 DF, 1X/DAY
     Route: 048
     Dates: start: 20250519, end: 20250522
  4. CABERGOLINE [Suspect]
     Active Substance: CABERGOLINE
     Dosage: 1 DF, 1X/DAY
     Route: 048
     Dates: start: 20250523, end: 20250527

REACTIONS (7)
  - Enterocolitis [Recovered/Resolved]
  - Malaise [Unknown]
  - Dizziness [Recovering/Resolving]
  - Asthenia [Recovering/Resolving]
  - Blood prolactin increased [Unknown]
  - Blood pressure decreased [Unknown]
  - Incorrect dose administered [Unknown]

NARRATIVE: CASE EVENT DATE: 20250514
